FAERS Safety Report 24459374 (Version 1)
Quarter: 2024Q4

REPORT INFORMATION
  Report Type: Spontaneous
  Country: AL (occurrence: AL)
  Receive Date: 20241018
  Receipt Date: 20241018
  Transmission Date: 20250115
  Serious: No
  Sender: ROCHE
  Company Number: AL-ROCHE-3537414

PATIENT
  Age: 52 Year
  Sex: Female

DRUGS (15)
  1. RITUXIMAB [Suspect]
     Active Substance: RITUXIMAB
     Indication: Rheumatoid arthritis
     Dosage: 2 DOSES
     Route: 042
  2. RITUXIMAB [Suspect]
     Active Substance: RITUXIMAB
     Dosage: MAINTENANCE INFUSIONS WERE EVERY 6 MONTHS
     Route: 042
  3. CANDESARTAN [Concomitant]
     Active Substance: CANDESARTAN
  4. FUROSEMIDE [Concomitant]
     Active Substance: FUROSEMIDE
  5. BISOPROLOL [Concomitant]
     Active Substance: BISOPROLOL\BISOPROLOL FUMARATE
  6. ASPIRIN [Concomitant]
     Active Substance: ASPIRIN
  7. ROSUVASTATIN [Concomitant]
     Active Substance: ROSUVASTATIN
  8. METHOTREXATE [Concomitant]
     Active Substance: METHOTREXATE
     Indication: Rheumatoid arthritis
  9. PREDNISONE [Concomitant]
     Active Substance: PREDNISONE
     Indication: Rheumatoid arthritis
  10. FOLIC ACID [Concomitant]
     Active Substance: FOLIC ACID
  11. CALCIUM [Concomitant]
     Active Substance: CALCIUM
  12. PANTOPRAZOLE [Concomitant]
     Active Substance: PANTOPRAZOLE
  13. ACETAMINOPHEN\TRAMADOL [Concomitant]
     Active Substance: ACETAMINOPHEN\TRAMADOL
     Dosage: TRAMADOL/PARACETAMOL 37.5/325 MG AS REQUIRED
  14. INFLIXIMAB [Concomitant]
     Active Substance: INFLIXIMAB
     Indication: Rheumatoid arthritis
     Dosage: FREQUENCY TEXT:AT WEEKS 0, 2, AND 6
  15. INFLIXIMAB [Concomitant]
     Active Substance: INFLIXIMAB
     Dosage: MAINTENANCE INFUSIONS EVERY 8 WEEKS, FOR A TOTAL OF 7 DOSES

REACTIONS (1)
  - Meningitis [Unknown]
